FAERS Safety Report 9954087 (Version 1)
Quarter: 2014Q1

REPORT INFORMATION
  Report Type: Report from Study
  Country: US (occurrence: US)
  Receive Date: 20140304
  Receipt Date: 20140304
  Transmission Date: 20141002
  Serious: No
  Sender: FDA-Public Use
  Company Number: US-ABBVIE-13P-163-1079450-00

PATIENT
  Age: 34 Year
  Sex: Female
  Weight: 90.35 kg

DRUGS (1)
  1. HUMIRA [Suspect]
     Indication: PSORIASIS
     Route: 058
     Dates: start: 201302

REACTIONS (3)
  - Insomnia [Not Recovered/Not Resolved]
  - Fear [Not Recovered/Not Resolved]
  - Emotional disorder [Not Recovered/Not Resolved]
